FAERS Safety Report 17864719 (Version 3)
Quarter: 2020Q3

REPORT INFORMATION
  Report Type: Report from Study
  Country: US (occurrence: US)
  Receive Date: 20200605
  Receipt Date: 20200706
  Transmission Date: 20201103
  Serious: Yes (Other)
  Sender: FDA-Public Use
  Company Number: US-PFIZER INC-2020028597

PATIENT
  Age: 72 Year
  Sex: Female

DRUGS (3)
  1. IBRANCE [Suspect]
     Active Substance: PALBOCICLIB
     Dosage: 100 MG, CYCLIC (DAILY 21 DAYS, OFF 7 DAYS)
     Dates: start: 20200604
  2. FASLODEX [Concomitant]
     Active Substance: FULVESTRANT
     Dosage: UNK
  3. IBRANCE [Suspect]
     Active Substance: PALBOCICLIB
     Indication: BREAST CANCER FEMALE
     Dosage: 125 MG, CYCLIC, (21 DAYS ON, 7 DAYS OFF)/(ONCE DAILY)
     Route: 048
     Dates: start: 20200108, end: 2020

REACTIONS (17)
  - Acquired diaphragmatic eventration [Unknown]
  - Throat irritation [Unknown]
  - White blood cell count decreased [Unknown]
  - Dyspnoea [Unknown]
  - Leukopenia [Unknown]
  - Back pain [Unknown]
  - Vision blurred [Recovering/Resolving]
  - Nasal pruritus [Recovered/Resolved]
  - Insomnia [Unknown]
  - Fatigue [Recovering/Resolving]
  - Alopecia [Unknown]
  - Eye pruritus [Recovered/Resolved]
  - Abdominal pain [Unknown]
  - Cough [Unknown]
  - Stomatitis [Unknown]
  - Dysgeusia [Unknown]
  - Neck pain [Unknown]

NARRATIVE: CASE EVENT DATE: 2020
